FAERS Safety Report 16661144 (Version 1)
Quarter: 2019Q3

REPORT INFORMATION
  Report Type: Spontaneous
  Country: BE (occurrence: BE)
  Receive Date: 20190801
  Receipt Date: 20190801
  Transmission Date: 20191004
  Serious: Yes (Hospitalization)
  Sender: FDA-Public Use
  Company Number: None

PATIENT
  Age: 37 Year
  Sex: Female
  Weight: 90 kg

DRUGS (1)
  1. AMOXICILLIN EG [Suspect]
     Active Substance: AMOXICILLIN
     Dosage: ?          QUANTITY:30 CAPSULE(S);?
     Route: 048
     Dates: start: 20190729, end: 20190801

REACTIONS (2)
  - Sleep disorder [None]
  - Insomnia [None]

NARRATIVE: CASE EVENT DATE: 20190731
